FAERS Safety Report 5447763-4 (Version None)
Quarter: 2007Q3

REPORT INFORMATION
  Report Type: 
  Country: None (occurrence: None)
  Receive Date: 20070910
  Receipt Date: 20070829
  Transmission Date: 20080115
  Serious: Yes (Hospitalization)
  Sender: FDA-Public Use
  Company Number: GB-ASTRAZENECA-2007AP04860

PATIENT
  Age: 792 Month
  Sex: Female

DRUGS (7)
  1. ARIMIDEX [Suspect]
     Indication: PROPHYLAXIS
     Route: 048
     Dates: start: 20060504
  2. ATORVASTATIN [Concomitant]
  3. BECONASE [Concomitant]
     Route: 055
  4. PULMICORT [Concomitant]
     Route: 055
  5. SALBUTAMOL [Concomitant]
     Route: 055
  6. METFORMIN HCL [Concomitant]
  7. ASPIRIN [Concomitant]

REACTIONS (2)
  - FALL [None]
  - SPINAL FRACTURE [None]
